FAERS Safety Report 15878616 (Version 1)
Quarter: 2019Q1

REPORT INFORMATION
  Report Type: Spontaneous
  Country: US (occurrence: US)
  Receive Date: 20190128
  Receipt Date: 20190128
  Transmission Date: 20190417
  Serious: No
  Sender: FDA-Public Use
  Company Number: US-PFIZER INC-2019036127

PATIENT
  Age: 56 Year
  Sex: Female

DRUGS (1)
  1. SOMAVERT [Suspect]
     Active Substance: PEGVISOMANT
     Dosage: 20 MG, DAILY
     Dates: start: 20181020

REACTIONS (13)
  - Polyuria [Unknown]
  - Blood alkaline phosphatase increased [Unknown]
  - Dizziness [Unknown]
  - Asthenia [Unknown]
  - Fatigue [Unknown]
  - Abdominal distension [Unknown]
  - Glycosylated haemoglobin increased [Unknown]
  - Muscle spasms [Unknown]
  - Dry skin [Unknown]
  - Hyperhidrosis [Unknown]
  - Alopecia [Unknown]
  - Headache [Unknown]
  - Blood glucose increased [Unknown]
